FAERS Safety Report 4509175-7 (Version None)
Quarter: 2004Q4

REPORT INFORMATION
  Report Type: 
  Country: None (occurrence: None)
  Receive Date: 20041025
  Receipt Date: 20040202
  Transmission Date: 20050328
  Serious: Yes (Other)
  Sender: FDA-Public Use
  Company Number: NSADSS2002024675

PATIENT

DRUGS (2)
  1. REMICADE [Suspect]
     Dosage: 1 IN 1 AS NECESSARY, INTRAVENOUS DRIP
     Route: 041
  2. SPORANOX [Concomitant]

REACTIONS (1)
  - FUNGAL INFECTION [None]
